FAERS Safety Report 13158783 (Version 1)
Quarter: 2017Q1

REPORT INFORMATION
  Report Type: Spontaneous
  Country: US (occurrence: US)
  Receive Date: 20170127
  Receipt Date: 20170127
  Transmission Date: 20170428
  Serious: Yes (Hospitalization, Other)
  Sender: FDA-Public Use
  Company Number: US-SMITH AND NEPHEW, INC-2017SMT00011

PATIENT
  Age: 56 Year
  Sex: Male
  Weight: 86.17 kg

DRUGS (6)
  1. UNSPECIFIED INHALER [Concomitant]
     Active Substance: UNSPECIFIED INGREDIENT
  2. REGRANEX [Suspect]
     Active Substance: BECAPLERMIN
     Indication: ULCER
     Dosage: UNK, 1X/DAY
     Route: 061
     Dates: start: 20161213
  3. ISOSORBIDE. [Concomitant]
     Active Substance: ISOSORBIDE
  4. UNSPECIFIED PRESSURE PILL [Concomitant]
  5. INSULIN [Concomitant]
     Active Substance: INSULIN NOS
  6. UNSPECIFIED SUGAR PILL [Concomitant]

REACTIONS (3)
  - Drug ineffective [Not Recovered/Not Resolved]
  - Application site pain [Not Recovered/Not Resolved]
  - Toe amputation [Recovered/Resolved with Sequelae]

NARRATIVE: CASE EVENT DATE: 20161213
